FAERS Safety Report 25035281 (Version 2)
Quarter: 2025Q1

REPORT INFORMATION
  Report Type: Spontaneous
  Country: US (occurrence: US)
  Receive Date: 20250304
  Receipt Date: 20250307
  Transmission Date: 20250409
  Serious: Yes (Hospitalization, Other)
  Sender: Kenvue
  Company Number: None

PATIENT
  Age: 44 Year
  Sex: Female

DRUGS (2)
  1. OXYCODONE HYDROCHLORIDE\OXYCODONE TEREPHTHALATE [Suspect]
     Active Substance: OXYCODONE HYDROCHLORIDE\OXYCODONE TEREPHTHALATE
     Indication: Rhinitis allergic
     Dosage: 15 MILLILITER, ONCE IN A WEEK; ONE AND A HALF TO TWO BOTTLES FOR 20 YEARS. AT THE TIME OF THE INTERV
     Route: 045
     Dates: start: 2003, end: 2023
  2. CARIPRAZINE [Concomitant]
     Active Substance: CARIPRAZINE
     Indication: Bipolar disorder
     Route: 065

REACTIONS (4)
  - Drug use disorder [Unknown]
  - Intentional product misuse [Unknown]
  - Rebound nasal congestion [Unknown]
  - Mental disorder [Unknown]
